FAERS Safety Report 6738054-X (Version None)
Quarter: 2010Q2

REPORT INFORMATION
  Report Type: 
  Country: None (occurrence: None)
  Receive Date: 20100519
  Receipt Date: 20100506
  Transmission Date: 20101027
  Serious: Yes (Other)
  Sender: FDA-Public Use
  Company Number: 011727

PATIENT

DRUGS (1)
  1. KEPPRA [Suspect]

REACTIONS (1)
  - INFANTILE SPASMS [None]
